FAERS Safety Report 6581712-0 (Version None)
Quarter: 2010Q1

REPORT INFORMATION
  Report Type: 
  Country: None (occurrence: None)
  Receive Date: 20100215
  Receipt Date: 20100201
  Transmission Date: 20100710
  Serious: Yes (Disabling, Other)
  Sender: FDA-Public Use
  Company Number: PHEH2008US07166

PATIENT
  Sex: Female

DRUGS (10)
  1. ZOMETA [Suspect]
     Dosage: UNK, UNK
  2. CHEMOTHERAPEUTICS NOS [Concomitant]
     Dosage: UNK
  3. DECADRON                                /CAN/ [Concomitant]
     Dosage: UNK
  4. SINGULAIR [Concomitant]
     Dosage: UNK
  5. KEFLEX [Concomitant]
     Dosage: 500 MG / QID
  6. VICODIN [Concomitant]
     Dosage: UNK
  7. PERIDEX [Concomitant]
     Dosage: UNK
  8. DOXYCYCLINE [Concomitant]
     Dosage: 100 MG / BID
  9. PREDNISONE [Concomitant]
     Dosage: UNK
  10. ALBUTEROL [Concomitant]
     Dosage: UNK

REACTIONS (15)
  - ANHEDONIA [None]
  - ANXIETY [None]
  - BONE DISORDER [None]
  - BREATH ODOUR [None]
  - EXOSTOSIS [None]
  - FISTULA DISCHARGE [None]
  - INJURY [None]
  - LOOSE TOOTH [None]
  - MENTAL DISORDER [None]
  - ORAL PAPILLOMA [None]
  - OSTEONECROSIS [None]
  - PAIN [None]
  - PHYSICAL DISABILITY [None]
  - TOOTH ABSCESS [None]
  - TOOTH EXTRACTION [None]
